FAERS Safety Report 16014325 (Version 2)
Quarter: 2019Q4

REPORT INFORMATION
  Report Type: Spontaneous
  Country: US (occurrence: US)
  Receive Date: 20190227
  Receipt Date: 20191022
  Transmission Date: 20200122
  Serious: Yes (Death, Other)
  Sender: FDA-Public Use
  Company Number: US-ASTRAZENECA-2018SF65848

PATIENT
  Age: 61 Year
  Sex: Female
  Weight: 147 kg

DRUGS (34)
  1. PRAVASTATIN SODIUM. [Concomitant]
     Active Substance: PRAVASTATIN SODIUM
     Dosage: OTC
  2. ASPIRIN. [Concomitant]
     Active Substance: ASPIRIN
     Dosage: 150 RX
  3. VISTARIL [Concomitant]
     Active Substance: HYDROXYZINE PAMOATE
     Dosage: OTC
  4. PAMELOR [Concomitant]
     Active Substance: NORTRIPTYLINE HYDROCHLORIDE
     Dosage: OTC
  5. NYSTATIN. [Concomitant]
     Active Substance: NYSTATIN
     Dosage: OTC
  6. SEVELAMER [Concomitant]
     Active Substance: SEVELAMER
     Dosage: OTC
  7. NEXIUM [Suspect]
     Active Substance: ESOMEPRAZOLE MAGNESIUM
     Indication: GASTROOESOPHAGEAL REFLUX DISEASE
     Route: 048
     Dates: start: 1996
  8. OLMESARTAN [Concomitant]
     Active Substance: OLMESARTAN
     Dosage: 150 RX
  9. NEXIUM [Suspect]
     Active Substance: ESOMEPRAZOLE MAGNESIUM
     Indication: GASTROOESOPHAGEAL REFLUX DISEASE
     Route: 048
     Dates: start: 1996, end: 2016
  10. CRESTOR [Concomitant]
     Active Substance: ROSUVASTATIN CALCIUM
     Route: 065
  11. ASPIRIN. [Concomitant]
     Active Substance: ASPIRIN
     Dosage: OTC
  12. SYNTHROID [Concomitant]
     Active Substance: LEVOTHYROXINE SODIUM
     Dosage: 150 RX
  13. NORTRIPTYLINE [Concomitant]
     Active Substance: NORTRIPTYLINE
     Dosage: OTC
  14. DEXILANT [Suspect]
     Active Substance: DEXLANSOPRAZOLE
     Indication: GASTROOESOPHAGEAL REFLUX DISEASE
     Route: 065
     Dates: start: 1996, end: 2016
  15. PRAVASTATIN SODIUM. [Concomitant]
     Active Substance: PRAVASTATIN SODIUM
     Dosage: 150 RX
  16. NORTRIPTYLINE [Concomitant]
     Active Substance: NORTRIPTYLINE
     Dosage: 150 RX
  17. OLMESARTAN [Concomitant]
     Active Substance: OLMESARTAN
     Dosage: OTC
  18. LANSOPRAZOLE. [Suspect]
     Active Substance: LANSOPRAZOLE
     Route: 065
  19. TAGAMET [Concomitant]
     Active Substance: CIMETIDINE
  20. PAMELOR [Concomitant]
     Active Substance: NORTRIPTYLINE HYDROCHLORIDE
     Dosage: 150 RX
  21. FLEXERIL [Concomitant]
     Active Substance: CYCLOBENZAPRINE HYDROCHLORIDE
     Dosage: 150 RX
  22. QUETIAPINE. [Concomitant]
     Active Substance: QUETIAPINE
     Dosage: OTC
  23. ZANTAC [Concomitant]
     Active Substance: RANITIDINE HYDROCHLORIDE
     Dosage: 150 RX
  24. VISTARIL [Concomitant]
     Active Substance: HYDROXYZINE PAMOATE
     Dosage: 150 RX
  25. QUETIAPINE. [Concomitant]
     Active Substance: QUETIAPINE
     Dosage: 150 RX
  26. NYSTATIN. [Concomitant]
     Active Substance: NYSTATIN
     Dosage: 150 RX
  27. OMEPRAZOLE. [Suspect]
     Active Substance: OMEPRAZOLE
     Dosage: GENERIC
     Route: 065
  28. DEXILANT [Suspect]
     Active Substance: DEXLANSOPRAZOLE
     Indication: GASTROOESOPHAGEAL REFLUX DISEASE
     Route: 065
     Dates: start: 2016
  29. DUEXIS [Concomitant]
     Active Substance: FAMOTIDINE\IBUPROFEN
  30. PEPCID [Concomitant]
     Active Substance: FAMOTIDINE
  31. ZANTAC [Concomitant]
     Active Substance: RANITIDINE HYDROCHLORIDE
     Dosage: OTC
  32. SYNTHROID [Concomitant]
     Active Substance: LEVOTHYROXINE SODIUM
     Dosage: OTC
  33. FLEXERIL [Concomitant]
     Active Substance: CYCLOBENZAPRINE HYDROCHLORIDE
     Dosage: OTC
  34. SEVELAMER [Concomitant]
     Active Substance: SEVELAMER
     Dosage: 150 RX

REACTIONS (9)
  - Renal failure [Not Recovered/Not Resolved]
  - Chronic kidney disease-mineral and bone disorder [Unknown]
  - Cardiogenic shock [Fatal]
  - Chronic kidney disease [Unknown]
  - Rebound acid hypersecretion [Unknown]
  - Pulmonary embolism [Fatal]
  - Acute respiratory failure [Fatal]
  - Nephrogenic anaemia [Unknown]
  - Acute kidney injury [Unknown]

NARRATIVE: CASE EVENT DATE: 2016
